FAERS Safety Report 18410192 (Version 1)
Quarter: 2020Q4

REPORT INFORMATION
  Report Type: Spontaneous
  Country: ES (occurrence: ES)
  Receive Date: 20201021
  Receipt Date: 20201021
  Transmission Date: 20210114
  Serious: Yes (Other)
  Sender: FDA-Public Use
  Company Number: ES-PFIZER INC-2020402277

PATIENT
  Age: 67 Year
  Sex: Male
  Weight: 101 kg

DRUGS (16)
  1. ARIPIPRAZOLE. [Suspect]
     Active Substance: ARIPIPRAZOLE
     Dosage: UNK UNK, 1X/DAY (UNK, QD)
  2. OSTEOPOR [COLLAGEN-HYDROXYAPATIT-COMPLEX] [Suspect]
     Active Substance: COLLAGEN\TRIBASIC CALCIUM PHOSPHATE
     Dosage: UNK UNK, 1X/DAY (UNK, QD)
  3. DIAZEPAM. [Suspect]
     Active Substance: DIAZEPAM
     Dosage: UNK UNK, 3X/DAY (UNK, TID)
  4. SINOGAN [LEVOMEPROMAZINE MALEATE] [Suspect]
     Active Substance: LEVOMEPROMAZINE MALEATE
     Dosage: UNK UNK, 1X/DAY (UNK, QD)
  5. LIVAZO [Suspect]
     Active Substance: PITAVASTATIN CALCIUM
     Dosage: UNK UNK, 1X/DAY (UNK UNK, QD)
  6. NOREBOX [REBOXETINE] [Suspect]
     Active Substance: REBOXETINE
     Dosage: UNK UNK, 2X/DAY (UNK, BID)
  7. AMLODIPINE BESILATE [Suspect]
     Active Substance: AMLODIPINE BESYLATE
     Indication: BLOOD PRESSURE INCREASED
     Dosage: UNK UNK, 1X/DAY (UNK UNK, QD)
  8. PARACETAMOL [Suspect]
     Active Substance: ACETAMINOPHEN
     Dosage: UNK, AS NEEDED
  9. AKINETON [Suspect]
     Active Substance: BIPERIDEN HYDROCHLORIDE
     Dosage: UNK, 1X/DAY (UNK, QD)
  10. EUTIROX [Suspect]
     Active Substance: LEVOTHYROXINE SODIUM
     Dosage: UNK, 1X/DAY
  11. VERSATIS [Suspect]
     Active Substance: LIDOCAINE
     Dosage: UNK UNK, AS NEEDED (UNK, PRN)
  12. KARVEZIDE [Suspect]
     Active Substance: HYDROCHLOROTHIAZIDE\IRBESARTAN
     Dosage: UNK UNK, 1X/DAY (UNK, QD)
  13. ZOMARIST [METFORMIN HYDROCHLORIDE;VILDAGLIPTIN] [Suspect]
     Active Substance: METFORMIN HYDROCHLORIDE\VILDAGLIPTIN
     Dosage: UNK UNK, 2X/DAY (UNK, BID)
  14. ADIRO [Suspect]
     Active Substance: ASPIRIN
     Dosage: UNK UNK, 1X/DAY (UNK, QD)
  15. DORMODOR [Suspect]
     Active Substance: FLURAZEPAM HYDROCHLORIDE
     Dosage: UNK UNK, 1X/DAY (UNK, QD,0-0-0-1)
  16. ZARELIS [Suspect]
     Active Substance: VENLAFAXINE HYDROCHLORIDE
     Dosage: UNK UNK, 1X/DAY (UNK, QD)

REACTIONS (9)
  - Weight increased [Recovered/Resolved]
  - Hyperhidrosis [Unknown]
  - Hypertension [Recovered/Resolved]
  - Muscle rigidity [Recovered/Resolved]
  - Akinesia [Recovered/Resolved]
  - Tremor [Unknown]
  - Oedema peripheral [Recovered/Resolved]
  - Treatment noncompliance [Recovering/Resolving]
  - Heart rate increased [Recovered/Resolved]

NARRATIVE: CASE EVENT DATE: 2018
